FAERS Safety Report 8855542 (Version 1)
Quarter: 2012Q4

REPORT INFORMATION
  Report Type: 
  Country: US (occurrence: US)
  Receive Date: 20121023
  Receipt Date: 20121023
  Transmission Date: 20130627
  Serious: No
  Sender: FDA-Public Use
  Company Number: US-AMGEN-USASP2012059670

PATIENT
  Sex: Female
  Weight: 48.98 kg

DRUGS (8)
  1. ENBREL [Suspect]
     Indication: PRODUCT USED FOR UNKNOWN INDICATION
     Dosage: 25 mg, 2 times/wk
     Route: 058
  2. BUPROPION [Concomitant]
     Dosage: 100 mg, UNK
  3. ZANTAC [Concomitant]
     Dosage: 150 mg, UNK
  4. VITAMIN B12                        /00056201/ [Concomitant]
     Dosage: 1000 CR
  5. VITAMIN C                          /00008001/ [Concomitant]
     Dosage: 500 mg, UNK
  6. VITAMIN D /00107901/ [Concomitant]
     Dosage: 1000 Unit
  7. CLIMARA [Concomitant]
     Dosage: 0.025 mg, UNK
  8. AMLODIPINE [Concomitant]
     Dosage: 2.5 mg, UNK

REACTIONS (3)
  - Sinusitis [Unknown]
  - Ear infection [Unknown]
  - Lower respiratory tract infection [Unknown]
